FAERS Safety Report 16566972 (Version 1)
Quarter: 2019Q3

REPORT INFORMATION
  Report Type: Spontaneous
  Country: DE (occurrence: DE)
  Receive Date: 20190712
  Receipt Date: 20190712
  Transmission Date: 20191004
  Serious: Yes (Other)
  Sender: FDA-Public Use
  Company Number: DE-009507513-1907DEU003248

PATIENT
  Sex: Male

DRUGS (1)
  1. TIOBLIS 10 MG/10 MG [Suspect]
     Active Substance: ATORVASTATIN\EZETIMIBE
     Route: 048

REACTIONS (1)
  - Polyneuropathy [Unknown]
